FAERS Safety Report 18206996 (Version 1)
Quarter: 2020Q3

REPORT INFORMATION
  Report Type: Spontaneous
  Country: KR (occurrence: KR)
  Receive Date: 20200828
  Receipt Date: 20200828
  Transmission Date: 20201103
  Serious: Yes (Other)
  Sender: FDA-Public Use
  Company Number: KR-009507513-2008KOR013312

PATIENT
  Sex: Female

DRUGS (2)
  1. PEMBROLIZUMAB. [Suspect]
     Active Substance: PEMBROLIZUMAB
     Indication: ENDOMETRIAL CANCER STAGE IV
     Dosage: UNK
     Dates: start: 20191028
  2. LENVATINIB MESYLATE [Suspect]
     Active Substance: LENVATINIB MESYLATE
     Indication: ENDOMETRIAL CANCER STAGE IV
     Dosage: 14 MG
     Dates: start: 20191028

REACTIONS (9)
  - Hypothyroidism [Unknown]
  - Palpitations [Unknown]
  - Weight fluctuation [Unknown]
  - Chest pain [Unknown]
  - Blood creatine phosphokinase abnormal [Unknown]
  - ECG signs of myocardial infarction [Unknown]
  - Supraventricular extrasystoles [Unknown]
  - Neutrophil count decreased [Unknown]
  - Product use in unapproved indication [Unknown]

NARRATIVE: CASE EVENT DATE: 20191028
